FAERS Safety Report 19686723 (Version 1)
Quarter: 2021Q3

REPORT INFORMATION
  Report Type: Report from Study
  Country: DE (occurrence: DE)
  Receive Date: 20210811
  Receipt Date: 20210811
  Transmission Date: 20211014
  Serious: Yes (Hospitalization, Disabling, Other)
  Sender: FDA-Public Use
  Company Number: DE-TAKEDA-ALL1-2014-00062

PATIENT
  Age: 10 Year
  Sex: Male

DRUGS (3)
  1. IDURSULFASE [Suspect]
     Active Substance: IDURSULFASE
     Indication: MUCOPOLYSACCHARIDOSIS II
     Dosage: 18 MG, UNKNOWN
     Route: 042
     Dates: start: 20060913
  2. IDURSULFASE [Suspect]
     Active Substance: IDURSULFASE
     Dosage: 0.53 MILLIGRAM/KILOGRAM, 1/WEEK
     Route: 042
     Dates: start: 20120106
  3. IDURSULFASE [Suspect]
     Active Substance: IDURSULFASE
     Dosage: UNK UNK, UNKNOWN
     Route: 042
     Dates: start: 20060907

REACTIONS (2)
  - Seizure [Not Recovered/Not Resolved]
  - Frontal lobe epilepsy [Recovered/Resolved with Sequelae]

NARRATIVE: CASE EVENT DATE: 20080905
